FAERS Safety Report 4932279-1 (Version None)
Quarter: 2006Q1

REPORT INFORMATION
  Report Type: 
  Country: None (occurrence: None)
  Receive Date: 20060228
  Receipt Date: 20060216
  Transmission Date: 20060701
  Serious: Yes (Hospitalization, Other)
  Sender: FDA-Public Use
  Company Number: 2006024107

PATIENT
  Sex: Male

DRUGS (1)
  1. LIPITOR [Suspect]
     Indication: HYPERCHOLESTEROLAEMIA
     Dosage: 20 MG (20  MG, 1 IN 1 D), ORAL
     Route: 048
     Dates: start: 20060216

REACTIONS (3)
  - COLD SWEAT [None]
  - HYPOTENSION [None]
  - PARAESTHESIA [None]
